FAERS Safety Report 9109674 (Version 1)
Quarter: 2013Q1

REPORT INFORMATION
  Report Type: Spontaneous
  Country: US (occurrence: US)
  Receive Date: 20130222
  Receipt Date: 20130222
  Transmission Date: 20140127
  Serious: No
  Sender: FDA-Public Use
  Company Number: US-PFIZER INC-2013066201

PATIENT
  Age: 53 Year
  Sex: Male
  Weight: 180 kg

DRUGS (3)
  1. ALAVERT [Suspect]
     Indication: SNEEZING
     Dosage: UNK, DAILY
     Route: 048
     Dates: start: 20130201, end: 20130210
  2. ALAVERT [Suspect]
     Indication: RHINORRHOEA
  3. NORVASC [Concomitant]
     Indication: HYPERTENSION
     Dosage: 10 MG, DAILY

REACTIONS (1)
  - Drug ineffective [Unknown]
